FAERS Safety Report 17914543 (Version 2)
Quarter: 2020Q2

REPORT INFORMATION
  Report Type: Spontaneous
  Country: DE (occurrence: DE)
  Receive Date: 20200618
  Receipt Date: 20200630
  Transmission Date: 20200714
  Serious: Yes (Hospitalization, Other)
  Sender: FDA-Public Use
  Company Number: NVSC2020DE169450

PATIENT
  Sex: Male
  Weight: 47 kg

DRUGS (7)
  1. DEXAMETHASONE. [Suspect]
     Active Substance: DEXAMETHASONE
     Dosage: 20 MG
     Route: 065
     Dates: start: 20190722
  2. EMPLICITI [Suspect]
     Active Substance: ELOTUZUMAB
     Indication: PLASMA CELL MYELOMA
     Dosage: 10 MG/KG
     Route: 042
     Dates: start: 20190710
  3. EMPLICITI [Suspect]
     Active Substance: ELOTUZUMAB
     Dosage: 20 MG/KG
     Route: 042
  4. DEXAMETHASONE. [Suspect]
     Active Substance: DEXAMETHASONE
     Indication: PLASMA CELL MYELOMA
     Dosage: 20 MG, QW
     Route: 065
     Dates: start: 20190710
  5. EMPLICITI [Suspect]
     Active Substance: ELOTUZUMAB
     Dosage: 10 MG/KG
     Route: 042
     Dates: start: 20190722
  6. POMALIDOMIDE [Suspect]
     Active Substance: POMALIDOMIDE
     Indication: PLASMA CELL MYELOMA
     Dosage: 2 MG (ON DAYS 1 TO 21)
     Route: 048
     Dates: start: 20190710
  7. POMALIDOMIDE [Suspect]
     Active Substance: POMALIDOMIDE
     Dosage: 2 MG
     Route: 065
     Dates: start: 20190722

REACTIONS (3)
  - Renal failure [Recovered/Resolved]
  - Neutropenia [Recovered/Resolved]
  - Febrile infection [Recovered/Resolved]

NARRATIVE: CASE EVENT DATE: 20190810
